FAERS Safety Report 19962408 (Version 1)
Quarter: 2021Q4

REPORT INFORMATION
  Report Type: Spontaneous
  Country: CH (occurrence: CH)
  Receive Date: 20211018
  Receipt Date: 20211018
  Transmission Date: 20220304
  Serious: Yes (Hospitalization)
  Sender: FDA-Public Use
  Company Number: CH-SUN PHARMACEUTICAL INDUSTRIES LTD-2021R1-313999

PATIENT
  Age: 38 Year
  Sex: Male

DRUGS (1)
  1. BUPROPION [Suspect]
     Active Substance: BUPROPION
     Indication: Depression
     Dosage: 1050 MILLIGRAM, DAILY
     Route: 065

REACTIONS (2)
  - Therapy non-responder [Unknown]
  - Drug level below therapeutic [Unknown]
